FAERS Safety Report 26215263 (Version 1)
Quarter: 2025Q4

REPORT INFORMATION
  Report Type: Spontaneous
  Country: US (occurrence: US)
  Receive Date: 20251230
  Receipt Date: 20251230
  Transmission Date: 20260119
  Serious: Yes (Other)
  Sender: BRISTOL-MYERS SQUIBB COMPANY
  Company Number: US-BRISTOL-MYERS SQUIBB COMPANY-2025-173892

PATIENT
  Age: 87 Year
  Sex: Female

DRUGS (2)
  1. LENALIDOMIDE [Suspect]
     Active Substance: LENALIDOMIDE
     Indication: B-cell lymphoma
  2. MONJUVI [Suspect]
     Active Substance: TAFASITAMAB-CXIX
     Indication: B-cell lymphoma

REACTIONS (8)
  - Arthritis [Unknown]
  - Bone pain [Unknown]
  - Arthralgia [Unknown]
  - Limb discomfort [Unknown]
  - Cerebrovascular accident [Unknown]
  - Back pain [Unknown]
  - Pain in extremity [Unknown]
  - Off label use [Unknown]

NARRATIVE: CASE EVENT DATE: 20250601
